FAERS Safety Report 9871876 (Version 1)
Quarter: 2014Q1

REPORT INFORMATION
  Report Type: Spontaneous
  Country: US (occurrence: US)
  Receive Date: 20140205
  Receipt Date: 20140205
  Transmission Date: 20141002
  Serious: No
  Sender: FDA-Public Use
  Company Number: US-ALLERGAN-1305619US

PATIENT
  Age: 39 Year
  Sex: Female

DRUGS (4)
  1. BOTOX [Suspect]
     Indication: SKIN WRINKLING
     Dosage: 140 UNITS, SINGLE
     Route: 030
     Dates: start: 20130403, end: 20130403
  2. BOTOX [Suspect]
     Indication: TEMPOROMANDIBULAR JOINT SYNDROME
  3. BOTOX [Suspect]
     Indication: MYOFASCIAL PAIN SYNDROME
  4. PAXIL [Concomitant]
     Indication: DEPRESSION
     Dosage: UNK
     Dates: start: 2010

REACTIONS (4)
  - Poor quality drug administered [Unknown]
  - Wrong technique in drug usage process [Unknown]
  - Off label use [Unknown]
  - Drug ineffective [Unknown]
